FAERS Safety Report 9604072 (Version 2)
Quarter: 2013Q4

REPORT INFORMATION
  Report Type: Report from Study
  Country: US (occurrence: US)
  Receive Date: 20131008
  Receipt Date: 20131108
  Transmission Date: 20140711
  Serious: Yes (Death)
  Sender: FDA-Public Use
  Company Number: US-ROCHE-1285797

PATIENT
  Age: 95 Year
  Sex: Male

DRUGS (1)
  1. ERIVEDGE [Suspect]
     Indication: BASAL CELL CARCINOMA
     Route: 048

REACTIONS (1)
  - Ischaemic stroke [Fatal]
